FAERS Safety Report 4551257-8 (Version None)
Quarter: 2005Q1

REPORT INFORMATION
  Report Type: 
  Country: None (occurrence: None)
  Receive Date: 20050106
  Receipt Date: 20041222
  Transmission Date: 20050727
  Serious: Yes (Hospitalization)
  Sender: FDA-Public Use
  Company Number: 2004JP001433

PATIENT
  Age: 46 Year
  Sex: Female

DRUGS (6)
  1. PROGRAF [Suspect]
     Indication: BONE MARROW TRANSPLANT
     Dosage: SEE IMAGE
     Route: 042
     Dates: start: 20031201, end: 20040719
  2. PROGRAF [Suspect]
     Indication: BONE MARROW TRANSPLANT
     Dosage: SEE IMAGE
     Route: 042
     Dates: start: 20040720, end: 20040721
  3. PROGRAF [Suspect]
     Indication: BONE MARROW TRANSPLANT
     Dosage: SEE IMAGE
     Route: 042
     Dates: start: 20040724, end: 20040809
  4. PENTAZOCINE LACTATE [Concomitant]
  5. SULPERAZON (CEFOPERAZONE SODIUM,SULBACTAM SODIUM) [Concomitant]
  6. OMEPRAZOLE [Concomitant]

REACTIONS (18)
  - ASTHENIA [None]
  - BACK PAIN [None]
  - CHOLECYSTITIS [None]
  - CLONIC CONVULSION [None]
  - CSF TEST ABNORMAL [None]
  - DRUG LEVEL INCREASED [None]
  - FALL [None]
  - GASTRITIS [None]
  - HEADACHE [None]
  - HEPATIC CYST [None]
  - HYPERTENSION [None]
  - NEPHROLITHIASIS [None]
  - NUCLEAR MAGNETIC RESONANCE IMAGING BRAIN ABNORMAL [None]
  - PANCREATITIS [None]
  - RENAL CYST [None]
  - REVERSIBLE POSTERIOR LEUKOENCEPHALOPATHY SYNDROME [None]
  - TACHYCARDIA [None]
  - TOXIC INDUCED ENCEPHALOPATHY [None]
